FAERS Safety Report 7866320-3 (Version None)
Quarter: 2011Q4

REPORT INFORMATION
  Report Type: 
  Country: None (occurrence: None)
  Receive Date: 20111028
  Receipt Date: 20110715
  Transmission Date: 20120403
  Serious: No
  Sender: FDA-Public Use
  Company Number: US-MYLANLABS-2011S1014951

PATIENT
  Age: 57 Year
  Sex: Female

DRUGS (1)
  1. DIAZEPAM [Suspect]
     Indication: ANXIETY
     Route: 048
     Dates: start: 20110701

REACTIONS (2)
  - RASH [None]
  - REACTION TO DRUG EXCIPIENTS [None]
